FAERS Safety Report 7151131-7 (Version None)
Quarter: 2010Q4

REPORT INFORMATION
  Report Type: 
  Country: None (occurrence: None)
  Receive Date: 20101210
  Receipt Date: 20101206
  Transmission Date: 20110411
  Serious: Yes (Other)
  Sender: FDA-Public Use
  Company Number: JP-BRISTOL-MYERS SQUIBB COMPANY-15426158

PATIENT

DRUGS (3)
  1. REYATAZ [Suspect]
     Dosage: DOUBLE DOSE OF MEDICATION FOR TWO WEEKS
     Route: 048
  2. NORVIR [Suspect]
     Dosage: (NOVIR)DOUBLE DOSE OF MEDICATION FOR TWO WEEKS
     Route: 048
  3. TRUVADA [Suspect]
     Dosage: DOUBLE DOSE OF MEDICATION FOR TWO WEEKS
     Route: 048

REACTIONS (2)
  - BLOOD CREATININE INCREASED [None]
  - OVERDOSE [None]
